FAERS Safety Report 7536423-1 (Version None)
Quarter: 2011Q2

REPORT INFORMATION
  Report Type: 
  Country: None (occurrence: None)
  Receive Date: 20110609
  Receipt Date: 20110601
  Transmission Date: 20111010
  Serious: Yes (Other)
  Sender: FDA-Public Use
  Company Number: JP-US-EMD SERONO, INC.-7062709

PATIENT
  Age: 43 Year
  Sex: Female

DRUGS (1)
  1. GONAL-F [Suspect]
     Indication: OVULATION INDUCTION

REACTIONS (1)
  - BREAST CANCER [None]
